FAERS Safety Report 7477155-8 (Version None)
Quarter: 2011Q2

REPORT INFORMATION
  Report Type: 
  Country: None (occurrence: None)
  Receive Date: 20110512
  Receipt Date: 20110211
  Transmission Date: 20111010
  Serious: No
  Sender: FDA-Public Use
  Company Number: US-NOVEN-11US001775

PATIENT
  Sex: Male
  Weight: 28.118 kg

DRUGS (2)
  1. CLONIDINE [Concomitant]
     Indication: INSOMNIA
     Dosage: 0.1 MG, UNKNOWN
  2. DAYTRANA [Suspect]
     Indication: ATTENTION DEFICIT/HYPERACTIVITY DISORDER
     Dosage: 15 MG, 9 HRS QD
     Route: 062
     Dates: start: 20100801

REACTIONS (5)
  - PSYCHOMOTOR HYPERACTIVITY [None]
  - WRONG TECHNIQUE IN DRUG USAGE PROCESS [None]
  - PRODUCT QUALITY ISSUE [None]
  - INCORRECT DRUG ADMINISTRATION DURATION [None]
  - HYPERHIDROSIS [None]
